FAERS Safety Report 10044087 (Version 1)
Quarter: 2014Q1

REPORT INFORMATION
  Report Type: Spontaneous
  Country: US (occurrence: US)
  Receive Date: 20140328
  Receipt Date: 20140328
  Transmission Date: 20141002
  Serious: No
  Sender: FDA-Public Use
  Company Number: US-MYLANLABS-2013S1027852

PATIENT
  Age: 34 Year
  Sex: Female
  Weight: 80.29 kg

DRUGS (3)
  1. EMSAM (SELEGILINE TRANSDERMAL SYSTEM) [Suspect]
     Indication: DEPRESSION
     Route: 062
     Dates: start: 201212, end: 20131209
  2. XANAX [Concomitant]
  3. PROPRANOLOL [Concomitant]

REACTIONS (1)
  - Insomnia [Recovered/Resolved]
